FAERS Safety Report 5306162-6 (Version None)
Quarter: 2007Q2

REPORT INFORMATION
  Report Type: 
  Country: None (occurrence: None)
  Receive Date: 20070417
  Receipt Date: 20070405
  Transmission Date: 20071010
  Serious: Yes (Hospitalization)
  Sender: FDA-Public Use
  Company Number: 062-C5013-07040466

PATIENT
  Age: 62 Year
  Sex: Female
  Weight: 80 kg

DRUGS (2)
  1. CC-5013 (LENALIDOMIDE) (CAPSULES) [Suspect]
     Indication: MULTIPLE MYELOMA
     Dosage: DAILY, ORAL
     Route: 048
     Dates: start: 20070323, end: 20070404
  2. DEXAMETHASONE TAB [Suspect]
     Indication: MULTIPLE MYELOMA

REACTIONS (4)
  - CONFUSIONAL STATE [None]
  - HYPOCALCAEMIA [None]
  - PYREXIA [None]
  - SOMNOLENCE [None]
